FAERS Safety Report 9006970 (Version 1)
Quarter: 2013Q1

REPORT INFORMATION
  Report Type: Spontaneous
  Country: US (occurrence: US)
  Receive Date: 20130110
  Receipt Date: 20130110
  Transmission Date: 20140127
  Serious: Yes (Hospitalization)
  Sender: FDA-Public Use
  Company Number: US-009507513-1301USA002452

PATIENT
  Age: 45 Year
  Sex: Female

DRUGS (3)
  1. SINGULAIR [Suspect]
     Indication: ASTHMA
     Dosage: 10 MG, UNK
     Route: 048
  2. NORDETTE [Suspect]
     Indication: CONTRACEPTION
  3. BECLOMETHASONE DIPROPIONATE [Concomitant]
     Dosage: REGULAR, QD
     Route: 048

REACTIONS (3)
  - Hepatomegaly [Unknown]
  - Hepatitis A [Unknown]
  - Hepatic steatosis [Unknown]
